FAERS Safety Report 22319096 (Version 2)
Quarter: 2023Q2

REPORT INFORMATION
  Report Type: Other
  Country: US (occurrence: None)
  Receive Date: 20230515
  Receipt Date: 20230524
  Transmission Date: 20230721
  Serious: Yes (Other)
  Sender: FDA-Public Use
  Company Number: US-ROCHE-2849628

PATIENT
  Sex: Male

DRUGS (2)
  1. VALCYTE [Suspect]
     Active Substance: VALGANCICLOVIR HYDROCHLORIDE
     Indication: Lung transplant
     Dosage: LAST DOSE ON 07/JUN/2021?450MG TABLET
     Route: 048
  2. VALCYTE [Suspect]
     Active Substance: VALGANCICLOVIR HYDROCHLORIDE
     Indication: Immunology test abnormal
     Dosage: 450 MG TABLETS,?LAST TREATMENT DATE: 09/JUN/2022, 11/MAY/2023
     Route: 048

REACTIONS (2)
  - Off label use [Unknown]
  - Deafness [Unknown]
